FAERS Safety Report 18224061 (Version 1)
Quarter: 2020Q3

REPORT INFORMATION
  Report Type: Spontaneous
  Country: US (occurrence: US)
  Receive Date: 20200902
  Receipt Date: 20200902
  Transmission Date: 20201103
  Serious: Yes (Other)
  Sender: FDA-Public Use
  Company Number: US-009507513-2008USA014421

PATIENT
  Sex: Female

DRUGS (9)
  1. SINGULAIR [Suspect]
     Active Substance: MONTELUKAST SODIUM
     Indication: PRODUCT USED FOR UNKNOWN INDICATION
     Dosage: UNK DOSAGE FORM
     Route: 048
     Dates: start: 2020, end: 2020
  2. REXULTI [Interacting]
     Active Substance: BREXPIPRAZOLE
     Indication: OBSESSIVE-COMPULSIVE DISORDER
  3. REXULTI [Interacting]
     Active Substance: BREXPIPRAZOLE
     Indication: DEPRESSION
     Dosage: 0.5 MILLIGRAM, 1 DOSE FOR THE FIRST TIME
     Route: 048
     Dates: start: 202006, end: 2020
  4. REXULTI [Interacting]
     Active Substance: BREXPIPRAZOLE
     Indication: ANXIETY
     Dosage: 0.5 MILLIGRAM, FOR A WEEK
     Route: 048
     Dates: start: 2020, end: 2020
  5. AMBIEN [Concomitant]
     Active Substance: ZOLPIDEM TARTRATE
     Dosage: UNK
  6. TRILEPTAL [Interacting]
     Active Substance: OXCARBAZEPINE
     Indication: PRODUCT USED FOR UNKNOWN INDICATION
     Dosage: UNK
     Dates: start: 2020, end: 202007
  7. GLUTAMIC ACID [Interacting]
     Active Substance: GLUTAMIC ACID
     Indication: ABDOMINAL HERNIA
     Dosage: UNK
     Dates: start: 2020
  8. REXULTI [Interacting]
     Active Substance: BREXPIPRAZOLE
     Indication: BIPOLAR DISORDER
     Dosage: 1 MILLIGRAM
     Route: 048
     Dates: start: 2020, end: 20200729
  9. ATIVAN [Concomitant]
     Active Substance: LORAZEPAM
     Dosage: UNK

REACTIONS (12)
  - Irritable bowel syndrome [Recovering/Resolving]
  - Psychotic disorder [Unknown]
  - Depressed level of consciousness [Unknown]
  - Food allergy [Not Recovered/Not Resolved]
  - Dyspnoea [Unknown]
  - Reaction to azo-dyes [Unknown]
  - Abdominal pain [Recovering/Resolving]
  - Weight decreased [Unknown]
  - Hypotonia [Not Recovered/Not Resolved]
  - Potentiating drug interaction [Unknown]
  - Drug interaction [Unknown]
  - Drug hypersensitivity [Unknown]

NARRATIVE: CASE EVENT DATE: 2020
